FAERS Safety Report 5605972-5 (Version None)
Quarter: 2008Q1

REPORT INFORMATION
  Report Type: 
  Country: None (occurrence: None)
  Receive Date: 20080123
  Receipt Date: 20080123
  Transmission Date: 20080703
  Serious: Yes (Hospitalization, Other)
  Sender: FDA-Public Use
  Company Number: None

PATIENT
  Age: 45 Year
  Sex: Male
  Weight: 99.7913 kg

DRUGS (1)
  1. CHANTIX [Suspect]
     Indication: SMOKING CESSATION THERAPY
     Dosage: 2 MG.  DAY  PO
     Route: 048
     Dates: start: 20071212, end: 20080114

REACTIONS (7)
  - ABNORMAL DREAMS [None]
  - ANGER [None]
  - CONDITION AGGRAVATED [None]
  - DECREASED INTEREST [None]
  - DEPRESSION [None]
  - FRUSTRATION [None]
  - HOMICIDAL IDEATION [None]
